FAERS Safety Report 14151577 (Version 1)
Quarter: 2017Q4

REPORT INFORMATION
  Report Type: Spontaneous
  Country: US (occurrence: US)
  Receive Date: 20171102
  Receipt Date: 20171102
  Transmission Date: 20180321
  Serious: Yes (Death, Other)
  Sender: FDA-Public Use
  Company Number: US-BRISTOL-MYERS SQUIBB COMPANY-BMS-2017-098867

PATIENT
  Age: 70 Year
  Sex: Female
  Weight: 49.43 kg

DRUGS (1)
  1. OPDIVO [Suspect]
     Active Substance: NIVOLUMAB
     Indication: LUNG NEOPLASM MALIGNANT
     Route: 065
     Dates: start: 201601, end: 20160516

REACTIONS (1)
  - Death [Fatal]

NARRATIVE: CASE EVENT DATE: 20160603
